FAERS Safety Report 16032032 (Version 1)
Quarter: 2019Q1

REPORT INFORMATION
  Report Type: Spontaneous
  Country: JP (occurrence: JP)
  Receive Date: 20190304
  Receipt Date: 20190304
  Transmission Date: 20190418
  Serious: Yes (Hospitalization, Other)
  Sender: FDA-Public Use
  Company Number: JP-PFIZER INC-2019086302

PATIENT
  Age: 61 Year
  Sex: Female
  Weight: 44.9 kg

DRUGS (10)
  1. ARTIST [Concomitant]
     Active Substance: CARVEDILOL
     Dosage: UNK
  2. FOSRENOL [Concomitant]
     Active Substance: LANTHANUM CARBONATE
     Dosage: UNK
  3. LIPITOR [Concomitant]
     Active Substance: ATORVASTATIN CALCIUM
     Dosage: UNK
  4. GABAPEN 200MG [Suspect]
     Active Substance: GABAPENTIN
     Indication: RESTLESS LEGS SYNDROME
     Dosage: 200 MG, DAILY (DIALYSIS ON MONDAY, WEDNESDAY AND FRIDAY)
     Route: 048
     Dates: start: 20190123, end: 20190125
  5. PURSENNIDE [Concomitant]
     Dosage: UNK
  6. SIGMART [Concomitant]
     Active Substance: NICORANDIL
     Dosage: UNK
  7. NORVASC [Concomitant]
     Active Substance: AMLODIPINE BESYLATE
     Dosage: UNK
  8. PLAVIX [Concomitant]
     Active Substance: CLOPIDOGREL BISULFATE
     Dosage: UNK
  9. CALTAN [Concomitant]
     Active Substance: CALCIUM CARBONATE
     Dosage: UNK
  10. BAYASPIRIN [Concomitant]
     Active Substance: ASPIRIN
     Dosage: UNK

REACTIONS (6)
  - Nystagmus [Recovered/Resolved]
  - Cerebral infarction [Recovered/Resolved]
  - Dizziness [Recovered/Resolved]
  - Nausea [Recovered/Resolved]
  - Product use in unapproved indication [Unknown]
  - Diplopia [Recovered/Resolved]

NARRATIVE: CASE EVENT DATE: 20190123
